FAERS Safety Report 21083597 (Version 1)
Quarter: 2022Q3

REPORT INFORMATION
  Report Type: Report from Study
  Country: IL (occurrence: IL)
  Receive Date: 20220714
  Receipt Date: 20220714
  Transmission Date: 20221027
  Serious: Yes (Hospitalization)
  Sender: FDA-Public Use
  Company Number: IL-ABBVIE-20K-082-3521094-00

PATIENT
  Age: 91 Year
  Sex: Male
  Weight: 61 kg

DRUGS (15)
  1. VENCLEXTA [Suspect]
     Active Substance: VENETOCLAX
     Indication: Chronic lymphocytic leukaemia
     Dosage: 20 MG TITRATION (RAMP-UP)
     Route: 048
     Dates: start: 20200623, end: 20200629
  2. VENCLEXTA [Suspect]
     Active Substance: VENETOCLAX
     Dosage: 50 MG TITRATION (RAMP-UP)
     Route: 048
     Dates: start: 20200630, end: 20200706
  3. VENCLEXTA [Suspect]
     Active Substance: VENETOCLAX
     Dosage: 100 MG TITRATION (RAMP-UP)
     Route: 048
     Dates: start: 20200707, end: 20200713
  4. VENCLEXTA [Suspect]
     Active Substance: VENETOCLAX
     Dosage: 200 MG TITRATION (RAMP-UP)
     Route: 048
     Dates: start: 20200714, end: 20200720
  5. VENCLEXTA [Suspect]
     Active Substance: VENETOCLAX
     Dosage: 400 MG VENETOCLAX DOSE MODIFICATION
     Route: 048
     Dates: start: 20200721, end: 20200729
  6. VENCLEXTA [Suspect]
     Active Substance: VENETOCLAX
     Route: 048
     Dates: start: 20200730, end: 20200812
  7. VENCLEXTA [Suspect]
     Active Substance: VENETOCLAX
     Route: 048
     Dates: start: 20200812, end: 20200813
  8. VENCLEXTA [Suspect]
     Active Substance: VENETOCLAX
     Route: 048
     Dates: start: 20200813, end: 20220320
  9. LAMIVUDINE [Concomitant]
     Active Substance: LAMIVUDINE
     Indication: Hepatitis B
     Dates: start: 201705
  10. LANTON [Concomitant]
     Indication: Product used for unknown indication
  11. ALFUZOSIN [Concomitant]
     Active Substance: ALFUZOSIN
     Indication: Benign prostatic hyperplasia
  12. AVODART [Concomitant]
     Active Substance: DUTASTERIDE
     Indication: Benign prostatic hyperplasia
  13. VENOFER [Concomitant]
     Active Substance: IRON SUCROSE
     Indication: Iron deficiency anaemia
     Route: 042
     Dates: start: 20200610
  14. XARELTO [Concomitant]
     Active Substance: RIVAROXABAN
     Indication: Atrial fibrillation
     Dates: start: 2017
  15. FOLIC ACID [Concomitant]
     Active Substance: FOLIC ACID
     Indication: Prophylaxis
     Dates: start: 20220331

REACTIONS (7)
  - Head injury [Recovered/Resolved]
  - Iron deficiency anaemia [Not Recovered/Not Resolved]
  - Fall [Recovered/Resolved]
  - Cytopenia [Not Recovered/Not Resolved]
  - Anaemia [Not Recovered/Not Resolved]
  - Vomiting [Not Recovered/Not Resolved]
  - Nausea [Not Recovered/Not Resolved]

NARRATIVE: CASE EVENT DATE: 20200729
